FAERS Safety Report 23857270 (Version 6)
Quarter: 2024Q3

REPORT INFORMATION
  Report Type: Report from Study
  Country: JP (occurrence: JP)
  Receive Date: 20240515
  Receipt Date: 20240724
  Transmission Date: 20241017
  Serious: Yes (Hospitalization)
  Sender: JOHNSON AND JOHNSON
  Company Number: JP-JNJFOC-20240372701

PATIENT
  Age: 79 Year
  Sex: Male
  Weight: 79 kg

DRUGS (4)
  1. ERLEADA [Suspect]
     Active Substance: APALUTAMIDE
     Indication: Prostate cancer metastatic
     Dosage: AT 8-10 IN THE MORNING
     Route: 048
     Dates: start: 20240115, end: 20240417
  2. ERLEADA [Suspect]
     Active Substance: APALUTAMIDE
     Route: 048
     Dates: start: 20240423, end: 20240424
  3. ERLEADA [Suspect]
     Active Substance: APALUTAMIDE
     Route: 048
     Dates: start: 20240508, end: 20240604
  4. DEGARELIX [Concomitant]
     Active Substance: DEGARELIX
     Indication: Prostate cancer metastatic
     Dosage: DOSE UNKNOWN
     Route: 058
     Dates: start: 2024, end: 20240508

REACTIONS (20)
  - Diverticulum intestinal haemorrhagic [Recovering/Resolving]
  - Hospitalisation [Recovered/Resolved]
  - Rash macular [Not Recovered/Not Resolved]
  - Increased appetite [Not Recovered/Not Resolved]
  - Weight increased [Recovered/Resolved]
  - Oedema [Not Recovered/Not Resolved]
  - Dry skin [Not Recovered/Not Resolved]
  - Pruritus [Not Recovered/Not Resolved]
  - Skin exfoliation [Not Recovered/Not Resolved]
  - Chills [Not Recovered/Not Resolved]
  - Feeling cold [Not Recovered/Not Resolved]
  - Weight decreased [Not Recovered/Not Resolved]
  - Skin fissures [Not Recovered/Not Resolved]
  - Alopecia [Not Recovered/Not Resolved]
  - Erythema [Not Recovered/Not Resolved]
  - Application site erythema [Not Recovered/Not Resolved]
  - Application site warmth [Not Recovered/Not Resolved]
  - Malaise [Not Recovered/Not Resolved]
  - Fatigue [Not Recovered/Not Resolved]
  - Somnolence [Not Recovered/Not Resolved]

NARRATIVE: CASE EVENT DATE: 20240101
